FAERS Safety Report 15962868 (Version 2)
Quarter: 2019Q1

REPORT INFORMATION
  Report Type: Spontaneous
  Country: CN (occurrence: CN)
  Receive Date: 20190214
  Receipt Date: 20190221
  Transmission Date: 20190417
  Serious: Yes (Hospitalization, Other)
  Sender: FDA-Public Use
  Company Number: CN-PFIZER INC-2019061812

PATIENT
  Age: 27 Year
  Sex: Male

DRUGS (32)
  1. METHOTREXATE. [Suspect]
     Active Substance: METHOTREXATE
     Dosage: UNK
     Dates: start: 20151030, end: 20151101
  2. CYTARABINE. [Suspect]
     Active Substance: CYTARABINE
     Dosage: 4 DF, CYCLIC
     Route: 037
     Dates: start: 201509
  3. CYCLOPHOSPHAMIDE. [Suspect]
     Active Substance: CYCLOPHOSPHAMIDE
     Dosage: UNK, CYCLIC
     Dates: start: 20151009, end: 20151023
  4. VINCRISTINE [Suspect]
     Active Substance: VINCRISTINE
     Indication: BURKITT^S LYMPHOMA STAGE IV
     Dosage: UNK UNK, DAILY (0.4 MG/M2 QD)
     Dates: start: 20150831
  5. PIRARUBICIN [Suspect]
     Active Substance: PIRARUBICIN
     Dosage: UNK, CYCLIC
     Dates: start: 20151009, end: 20151023
  6. METHOTREXATE. [Suspect]
     Active Substance: METHOTREXATE
     Indication: BURKITT^S LYMPHOMA STAGE IV
     Dosage: 4 DF, CYCLIC
     Route: 037
     Dates: start: 201509
  7. METHOTREXATE. [Suspect]
     Active Substance: METHOTREXATE
     Dosage: 2 DF, CYCLIC
     Route: 037
     Dates: start: 2015
  8. CYCLOPHOSPHAMIDE. [Suspect]
     Active Substance: CYCLOPHOSPHAMIDE
     Indication: BURKITT^S LYMPHOMA STAGE IV
     Dosage: UNK UNK, DAILY  (0.75 MG/M2, QD DAY 5)
     Dates: start: 20150831
  9. VINCRISTINE [Suspect]
     Active Substance: VINCRISTINE
     Dosage: UNK
     Dates: start: 20151120, end: 20151125
  10. PIRARUBICIN [Suspect]
     Active Substance: PIRARUBICIN
     Indication: BURKITT^S LYMPHOMA STAGE IV
     Dosage: UNK UNK, DAILY (10 MG/M2 QD DAY 1-4)
     Dates: start: 20150831
  11. VINORELBINE [Suspect]
     Active Substance: VINORELBINE\VINORELBINE TARTRATE
     Indication: BURKITT^S LYMPHOMA STAGE IV
     Dosage: UNK, CYCLIC
     Dates: start: 20151009, end: 20151023
  12. METHOTREXATE. [Suspect]
     Active Substance: METHOTREXATE
     Indication: BURKITT^S LYMPHOMA STAGE IV
     Dosage: UNK, CYCLIC 1 G/M2 (QD DAY 1)
     Dates: start: 20150921, end: 20150923
  13. DEXAMETHASONE. [Suspect]
     Active Substance: DEXAMETHASONE
     Dosage: UNK, CYCLIC
     Dates: start: 20151009, end: 20151023
  14. DEXAMETHASONE. [Suspect]
     Active Substance: DEXAMETHASONE
     Dosage: 2 DF, CYCLIC
     Route: 037
     Dates: start: 2015
  15. RITUXIMAB. [Suspect]
     Active Substance: RITUXIMAB
     Dosage: UNK UNK, CYCLIC
     Dates: start: 20150921, end: 20150923
  16. LAMIVUDINE. [Concomitant]
     Active Substance: LAMIVUDINE
     Indication: HIV INFECTION
     Dosage: 300 MG, DAILY
     Dates: start: 20150825
  17. CYTARABINE. [Suspect]
     Active Substance: CYTARABINE
     Dosage: UNK UNK, 2X/DAY (3 GRAM/M2 BID DAY 2)
     Dates: start: 20150921, end: 20150923
  18. CYTARABINE. [Suspect]
     Active Substance: CYTARABINE
     Dosage: UNK, CYCLIC
     Dates: start: 20151030, end: 20151101
  19. DEXAMETHASONE. [Suspect]
     Active Substance: DEXAMETHASONE
     Indication: BURKITT^S LYMPHOMA STAGE IV
     Dosage: 4 DF, CYCLIC
     Route: 037
     Dates: start: 201509
  20. CYCLOPHOSPHAMIDE. [Suspect]
     Active Substance: CYCLOPHOSPHAMIDE
     Dosage: UNK
     Dates: start: 20151120, end: 20151125
  21. RITUXIMAB. [Suspect]
     Active Substance: RITUXIMAB
     Dosage: UNK, CYCLIC
     Dates: start: 20151030, end: 20151101
  22. TENOFOVIR [Concomitant]
     Active Substance: TENOFOVIR
     Indication: HIV INFECTION
     Dosage: 300 MG, DAILY
     Dates: start: 20150825
  23. PIRARUBICIN [Suspect]
     Active Substance: PIRARUBICIN
     Dosage: UNK
     Dates: start: 20151120, end: 20151125
  24. PREDNISONE ACETATE [Suspect]
     Active Substance: PREDNISONE ACETATE
     Indication: BURKITT^S LYMPHOMA STAGE IV
     Dosage: UNK UNK, DAILY (100 MG/M2 QD DAY 1-5)
     Dates: start: 20150831
  25. CYTARABINE. [Suspect]
     Active Substance: CYTARABINE
     Dosage: 2 DF, CYCLIC
     Route: 037
     Dates: start: 2015
  26. ETOPOSIDE. [Suspect]
     Active Substance: ETOPOSIDE
     Indication: BURKITT^S LYMPHOMA STAGE IV
     Dosage: UNK UNK, DAILY (60 MG/M2, QD)
     Dates: start: 20150831
  27. RITUXIMAB. [Suspect]
     Active Substance: RITUXIMAB
     Dosage: UNK
     Dates: start: 20151120, end: 20151125
  28. EFAVIRENZ. [Concomitant]
     Active Substance: EFAVIRENZ
     Indication: HIV INFECTION
     Dosage: 600 MG, DAILY
     Dates: start: 20150825
  29. ETOPOSIDE. [Suspect]
     Active Substance: ETOPOSIDE
     Dosage: UNK
     Dates: start: 20151120, end: 20151125
  30. PREDNISONE ACETATE [Suspect]
     Active Substance: PREDNISONE ACETATE
     Dosage: UNK
     Dates: start: 20151120, end: 20151125
  31. RITUXIMAB. [Suspect]
     Active Substance: RITUXIMAB
     Indication: BURKITT^S LYMPHOMA STAGE IV
     Dosage: UNK UNK, DAILY (375 MG/M2 QD DAY 0)
     Dates: start: 20150831
  32. RITUXIMAB. [Suspect]
     Active Substance: RITUXIMAB
     Dosage: UNK, CYCLIC
     Dates: start: 20151009, end: 20151023

REACTIONS (4)
  - Pneumonia [Recovered/Resolved]
  - Agranulocytosis [Recovered/Resolved]
  - Bone marrow failure [Recovered/Resolved]
  - Staphylococcal sepsis [Recovered/Resolved]

NARRATIVE: CASE EVENT DATE: 201509
